FAERS Safety Report 10182581 (Version 1)
Quarter: 2014Q2

REPORT INFORMATION
  Report Type: Spontaneous
  Country: US (occurrence: None)
  Receive Date: 20140416
  Receipt Date: 20140416
  Transmission Date: 20141212
  Serious: Yes (Hospitalization)
  Sender: FDA-Public Use
  Company Number: 163-POMAL-14012349

PATIENT
  Age: 71 Year
  Sex: Male
  Weight: 61.69 kg

DRUGS (8)
  1. POMALYST [Suspect]
     Indication: PLASMA CELL MYELOMA
     Dosage: 4 MG, 21 IN 21 D, PO
     Route: 048
     Dates: start: 20131205, end: 201312
  2. MEGACE (MEGESTROL ACETATE) [Concomitant]
  3. TEMAZEPAM [Concomitant]
  4. PROCHLORPERAZINE [Concomitant]
  5. PERCOCET (OXYCOCET) [Concomitant]
  6. ARANESP (DARBEPOETIN ALFA) [Concomitant]
  7. PROTONIX [Concomitant]
  8. DEXAMETHASONE [Concomitant]

REACTIONS (1)
  - Renal failure acute [None]
